FAERS Safety Report 10083280 (Version 2)
Quarter: 2014Q2

REPORT INFORMATION
  Report Type: Spontaneous
  Country: US (occurrence: US)
  Receive Date: 20140417
  Receipt Date: 20140417
  Transmission Date: 20141212
  Serious: Yes (Other)
  Sender: FDA-Public Use
  Company Number: US-ROCHE-1362194

PATIENT
  Sex: Female

DRUGS (1)
  1. XELODA [Suspect]
     Indication: METASTASES TO NERVOUS SYSTEM
     Route: 048
     Dates: start: 20140116

REACTIONS (4)
  - Thrombosis [Unknown]
  - Erythema [Unknown]
  - Diarrhoea [Unknown]
  - Drug dose omission [Unknown]
